FAERS Safety Report 20500395 (Version 1)
Quarter: 2022Q1

REPORT INFORMATION
  Report Type: Spontaneous
  Country: US (occurrence: None)
  Receive Date: 20220218
  Receipt Date: 20220218
  Transmission Date: 20220424
  Serious: No
  Sender: FDA-Public Use
  Company Number: None

PATIENT
  Age: 24 Year
  Sex: Male
  Weight: 237.15 kg

DRUGS (5)
  1. SURE ANTIPERSPIRANT DEODORANT UNSCENTED [Suspect]
     Active Substance: ALUMINUM CHLOROHYDRATE
     Indication: Hyperhidrosis
     Dosage: OTHER QUANTITY : 4 SPRAY(S);?FREQUENCY : AS NEEDED;?
     Route: 061
     Dates: start: 20220123, end: 20220201
  2. SERTRALINE [Concomitant]
     Active Substance: SERTRALINE HYDROCHLORIDE
  3. CLARITIN-D NOS [Concomitant]
     Active Substance: LORATADINE\PSEUDOEPHEDRINE SULFATE
  4. PANTOPRAZOLE [Concomitant]
     Active Substance: PANTOPRAZOLE
  5. SUDAFED [Concomitant]
     Active Substance: PSEUDOEPHEDRINE HYDROCHLORIDE

REACTIONS (3)
  - Recalled product [None]
  - Application site haemorrhage [None]
  - Application site swelling [None]

NARRATIVE: CASE EVENT DATE: 20220123
